FAERS Safety Report 6674035-2 (Version None)
Quarter: 2010Q1

REPORT INFORMATION
  Report Type: 
  Country: None (occurrence: None)
  Receive Date: 20100329
  Receipt Date: 20091130
  Transmission Date: 20100710
  Serious: Yes (Other)
  Sender: FDA-Public Use
  Company Number: 2009287162

PATIENT
  Age: 24 Year
  Sex: Male

DRUGS (3)
  1. GEODON [Suspect]
     Indication: BIPOLAR DISORDER
     Dosage: 120MG DAILY, ORAL
     Route: 048
     Dates: start: 20090728, end: 20091028
  2. LAMICTAL [Concomitant]
  3. NEURONTIN [Concomitant]

REACTIONS (1)
  - TARDIVE DYSKINESIA [None]
